FAERS Safety Report 9173971 (Version 1)
Quarter: 2013Q1

REPORT INFORMATION
  Report Type: Spontaneous
  Country: GB (occurrence: None)
  Receive Date: 20130315
  Receipt Date: 20130315
  Transmission Date: 20140127
  Serious: Yes (Hospitalization)
  Sender: FDA-Public Use
  Company Number: GER/UKI/13/0028540

PATIENT
  Age: 67 Year
  Sex: Male

DRUGS (10)
  1. CLOPIDOGREL (CLOPIDOGREL) [Suspect]
     Indication: CEREBROVASCULAR ACCIDENT
     Dosage: 10 Y
     Route: 048
  2. AMLODIPINE(AMLODIPINE) [Concomitant]
  3. ASPIRIN(ACETYLSALICYLIC ACID) [Concomitant]
  4. ATORVASTATIN(ATORVASTATIN) [Concomitant]
  5. BISOPROLOL(BISOPROLOL) [Concomitant]
  6. GLYCERYL TRINITRATE(GLYCERYL TRINITRATE) [Concomitant]
  7. ISOSORBIDE MONONITRATE(ISOSORBIDE MONONITRATE) [Concomitant]
  8. PERHEXILINE(PERHEXILINE) [Concomitant]
  9. RAMIPRIL(RAMIPRIL) [Concomitant]
  10. TROPIDOL(METHYLPREDNISOLONE) [Concomitant]

REACTIONS (3)
  - Gastrooesophageal reflux disease [None]
  - Chromaturia [None]
  - Abdominal distension [None]
